FAERS Safety Report 8093210-6 (Version None)
Quarter: 2012Q1

REPORT INFORMATION
  Report Type: 
  Country: None (occurrence: None)
  Receive Date: 20120128
  Receipt Date: 20111027
  Transmission Date: 20120608
  Serious: Yes (Hospitalization, Other)
  Sender: FDA-Public Use
  Company Number: US-ABBOTT-11P-163-0702743-00

PATIENT
  Sex: Female

DRUGS (8)
  1. DIOVAN [Concomitant]
     Indication: HYPERTENSION
     Dosage: 160/25MG DAILY
  2. LEXAPRO [Concomitant]
     Indication: DEPRESSION
     Dosage: 20MG DAILY
  3. SIMVASTATIN [Concomitant]
     Indication: BLOOD CHOLESTEROL INCREASED
     Dosage: 20MG DAILY
  4. HUMIRA [Suspect]
     Indication: OSTEOARTHRITIS
  5. HUMIRA [Suspect]
     Indication: RHEUMATOID ARTHRITIS
     Dates: start: 20110101, end: 20110801
  6. FORTEO [Concomitant]
     Indication: PRODUCT USED FOR UNKNOWN INDICATION
  7. HUMIRA [Suspect]
     Indication: PSORIASIS
  8. RECLAST [Concomitant]
     Indication: BONE LOSS

REACTIONS (2)
  - ARTHRALGIA [None]
  - INJECTION SITE PAIN [None]
